FAERS Safety Report 18452628 (Version 5)
Quarter: 2022Q3

REPORT INFORMATION
  Report Type: Spontaneous
  Country: US (occurrence: US)
  Receive Date: 20201102
  Receipt Date: 20220808
  Transmission Date: 20221027
  Serious: Yes (Disabling, Other)
  Sender: FDA-Public Use
  Company Number: US-PFIZER INC-2020419314

PATIENT
  Age: 61 Year
  Sex: Female
  Weight: 92.99 kg

DRUGS (2)
  1. CHANTIX [Suspect]
     Active Substance: VARENICLINE TARTRATE
     Indication: Smoking cessation therapy
     Dosage: 1 MG, 1 TABLET TWICE DAILY
     Route: 048
     Dates: start: 2012
  2. CHANTIX [Suspect]
     Active Substance: VARENICLINE TARTRATE
     Dosage: 1 MG, 1 TABLET TWICE DAILY
     Route: 048
     Dates: start: 202101, end: 202104

REACTIONS (17)
  - Road traffic accident [Unknown]
  - Joint injury [Unknown]
  - Limb injury [Unknown]
  - Neck injury [Unknown]
  - Back injury [Unknown]
  - Decreased appetite [Unknown]
  - Weight decreased [Unknown]
  - Illness [Unknown]
  - Depression [Recovered/Resolved]
  - Feeling abnormal [Recovered/Resolved]
  - Weight fluctuation [Unknown]
  - Weight increased [Unknown]
  - Anxiety [Unknown]
  - Tobacco user [Unknown]
  - Wheezing [Unknown]
  - Visual impairment [Unknown]
  - Corneal disorder [Unknown]

NARRATIVE: CASE EVENT DATE: 20210401
